FAERS Safety Report 13652605 (Version 1)
Quarter: 2017Q2

REPORT INFORMATION
  Report Type: Spontaneous
  Country: US (occurrence: US)
  Receive Date: 20170614
  Receipt Date: 20170614
  Transmission Date: 20170830
  Serious: No
  Sender: FDA-Public Use
  Company Number: US-ROCHE-721481

PATIENT
  Age: 52 Year
  Sex: Male

DRUGS (1)
  1. XELODA [Suspect]
     Active Substance: CAPECITABINE
     Indication: COLORECTAL CANCER
     Dosage: STRENGTH: 500 MG AND 150 MG
     Route: 048
     Dates: start: 20100810, end: 20100815

REACTIONS (4)
  - Constipation [Recovered/Resolved]
  - Abdominal pain [Recovered/Resolved]
  - Musculoskeletal pain [Recovered/Resolved]
  - Abdominal distension [Recovered/Resolved]

NARRATIVE: CASE EVENT DATE: 20100811
